FAERS Safety Report 16404317 (Version 1)
Quarter: 2019Q2

REPORT INFORMATION
  Report Type: Spontaneous
  Country: US (occurrence: US)
  Receive Date: 20190607
  Receipt Date: 20190607
  Transmission Date: 20190711
  Serious: No
  Sender: FDA-Public Use
  Company Number: US-PFIZER INC-2019238184

PATIENT
  Age: 42 Year
  Sex: Male
  Weight: 75.75 kg

DRUGS (1)
  1. LYRICA [Suspect]
     Active Substance: PREGABALIN
     Dosage: 150 MG, 2X/DAY
     Route: 048
     Dates: start: 201811

REACTIONS (3)
  - Pain [Unknown]
  - Intentional product misuse [Unknown]
  - Gait disturbance [Unknown]
